FAERS Safety Report 9192081 (Version 1)
Quarter: 2013Q1

REPORT INFORMATION
  Report Type: Spontaneous
  Country: US (occurrence: None)
  Receive Date: 20120418
  Receipt Date: 20120418
  Transmission Date: 20140127
  Serious: No
  Sender: FDA-Public Use
  Company Number: PHEH2012US008270

PATIENT
  Sex: 0

DRUGS (1)
  1. GILENYA (FTY) CAPSULE [Suspect]

REACTIONS (2)
  - Pathological fracture [None]
  - White blood cell count decreased [None]
